FAERS Safety Report 9498514 (Version 1)
Quarter: 2013Q3

REPORT INFORMATION
  Report Type: Spontaneous
  Country: AU (occurrence: AU)
  Receive Date: 20130904
  Receipt Date: 20130904
  Transmission Date: 20140515
  Serious: Yes (Hospitalization)
  Sender: FDA-Public Use
  Company Number: AU-CELGENEUS-008-20785-13082763

PATIENT
  Sex: Male

DRUGS (2)
  1. THALIDOMIDE [Suspect]
     Indication: GRAFT VERSUS HOST DISEASE
     Route: 048
  2. THALIDOMIDE [Suspect]
     Indication: OFF LABEL USE

REACTIONS (1)
  - Graft versus host disease [Unknown]
